FAERS Safety Report 20826355 (Version 1)
Quarter: 2022Q2

REPORT INFORMATION
  Report Type: Spontaneous
  Country: US (occurrence: None)
  Receive Date: 20220512
  Receipt Date: 20220512
  Transmission Date: 20220721
  Serious: No
  Sender: FDA-Public Use
  Company Number: None

PATIENT
  Age: 54 Year
  Sex: Female
  Weight: 69.4 kg

DRUGS (6)
  1. IBRANCE [Suspect]
     Active Substance: PALBOCICLIB
     Indication: Breast cancer
     Dosage: FREQUENCY : AS DIRECTED;?
     Route: 048
     Dates: start: 202106
  2. BENADRYL [Concomitant]
     Active Substance: DIPHENHYDRAMINE HYDROCHLORIDE
  3. CEPHALEXIN [Concomitant]
     Active Substance: CEPHALEXIN
  4. FASLODEX [Concomitant]
     Active Substance: FULVESTRANT
  5. METRODINAZOLE [Concomitant]
  6. PROCHLOPERAZINE [Concomitant]

REACTIONS (1)
  - Bladder cancer [None]

NARRATIVE: CASE EVENT DATE: 20220426
